FAERS Safety Report 10036755 (Version 1)
Quarter: 2014Q1

REPORT INFORMATION
  Report Type: Spontaneous
  Country: US (occurrence: US)
  Receive Date: 20140326
  Receipt Date: 20140326
  Transmission Date: 20141002
  Serious: No
  Sender: FDA-Public Use
  Company Number: US-BIOGENIDEC-2014BI024742

PATIENT
  Age: 67 Year
  Sex: Female

DRUGS (9)
  1. TECFIDERA [Suspect]
     Indication: MULTIPLE SCLEROSIS
     Route: 048
     Dates: start: 20140223
  2. CALCIUM [Concomitant]
  3. EVISTA [Concomitant]
  4. FLUOXETINE HCL [Concomitant]
  5. LEVOTHYROXINE SODIUM [Concomitant]
  6. OCUVITE ADULT [Concomitant]
  7. PROZAC [Concomitant]
  8. SALMON OIL [Concomitant]
  9. VITAMIN B COMPLEX [Concomitant]

REACTIONS (3)
  - Underdose [Not Recovered/Not Resolved]
  - Flushing [Unknown]
  - Abdominal pain [Unknown]
